FAERS Safety Report 25771634 (Version 1)
Quarter: 2025Q3

REPORT INFORMATION
  Report Type: Spontaneous
  Country: US (occurrence: US)
  Receive Date: 20250908
  Receipt Date: 20250908
  Transmission Date: 20251021
  Serious: No
  Sender: DOMPE FARMACEUTICI
  Company Number: US-FARMAPROD-202505-1523

PATIENT
  Sex: Female

DRUGS (39)
  1. OXERVATE [Suspect]
     Active Substance: CENEGERMIN-BKBJ
     Indication: Neurotrophic keratopathy
     Route: 047
     Dates: start: 20240313, end: 20240406
  2. OXERVATE [Suspect]
     Active Substance: CENEGERMIN-BKBJ
     Route: 047
     Dates: start: 20250428
  3. OXERVATE [Suspect]
     Active Substance: CENEGERMIN-BKBJ
  4. LOMOTIL [Concomitant]
     Active Substance: ATROPINE SULFATE\DIPHENOXYLATE HYDROCHLORIDE
  5. PHAZYME [Concomitant]
     Active Substance: DIMETHICONE 410
  6. ESTRADIOL [Concomitant]
     Active Substance: ESTRADIOL
  7. IMMUNE ESSENTIALS [Concomitant]
  8. NITROFURANTOIN [Concomitant]
     Active Substance: NITROFURANTOIN
  9. SYSTANE (HYPROMELLOSE 2910 (4000 MPA.S)) [Concomitant]
     Active Substance: HYPROMELLOSE 2910 (4000 MPA.S)
  10. OXYCODONE HYDROCHLORIDE [Concomitant]
     Active Substance: OXYCODONE HYDROCHLORIDE
  11. ALEVE [Concomitant]
     Active Substance: NAPROXEN SODIUM
  12. CHOLESTYRAMINE [Concomitant]
     Active Substance: CHOLESTYRAMINE
  13. REFRESH OPTIVE [Concomitant]
     Active Substance: CARBOXYMETHYLCELLULOSE SODIUM\GLYCERIN
  14. DEXAMETHASONE\TOBRAMYCIN [Concomitant]
     Active Substance: DEXAMETHASONE\TOBRAMYCIN
  15. PROBIOTICS NOS [Concomitant]
     Active Substance: PROBIOTICS NOS
  16. VITAMIN D3 [Concomitant]
     Active Substance: CHOLECALCIFEROL
  17. FIBER THERAPY (CALCIUM POLYCARBOPHIL) [Concomitant]
     Active Substance: CALCIUM POLYCARBOPHIL
  18. BIOTIN [Concomitant]
     Active Substance: BIOTIN
  19. CALCIUM [Concomitant]
     Active Substance: CALCIUM
  20. IRON [Concomitant]
     Active Substance: IRON
  21. VITAMINS [Concomitant]
     Active Substance: VITAMINS
  22. ALENDRONATE SODIUM [Concomitant]
     Active Substance: ALENDRONATE SODIUM
  23. LOPERAMIDE [Concomitant]
     Active Substance: LOPERAMIDE
  24. GEMTESA [Concomitant]
     Active Substance: VIBEGRON
  25. VIBERZI [Concomitant]
     Active Substance: ELUXADOLINE
  26. BACLOFEN [Concomitant]
     Active Substance: BACLOFEN
  27. IPRATROPIUM BROMIDE [Concomitant]
     Active Substance: IPRATROPIUM BROMIDE
  28. MOMETASONE FUROATE [Concomitant]
     Active Substance: MOMETASONE FUROATE
  29. VITAMIN E [Concomitant]
     Active Substance: .ALPHA.-TOCOPHEROL
  30. FLUTICASONE PROPIONATE\SALMETEROL XINAFOATE [Concomitant]
     Active Substance: FLUTICASONE PROPIONATE\SALMETEROL XINAFOATE
  31. ALBUTEROL SULFATE [Concomitant]
     Active Substance: ALBUTEROL SULFATE
  32. PHENTERMINE HYDROCHLORIDE [Concomitant]
     Active Substance: PHENTERMINE HYDROCHLORIDE
  33. ZOLOFT [Concomitant]
     Active Substance: SERTRALINE HYDROCHLORIDE
  34. XANAX [Concomitant]
     Active Substance: ALPRAZOLAM
  35. XANAX [Concomitant]
     Active Substance: ALPRAZOLAM
  36. KEPPRA [Concomitant]
     Active Substance: LEVETIRACETAM
  37. OCREVUS [Concomitant]
     Active Substance: OCRELIZUMAB
  38. MECLIZINE HYDROCHLORIDE [Concomitant]
     Active Substance: MECLIZINE HYDROCHLORIDE
  39. NEURONTIN [Concomitant]
     Active Substance: GABAPENTIN

REACTIONS (3)
  - Eye pain [Unknown]
  - Eye contusion [Unknown]
  - Drug ineffective [Unknown]
